FAERS Safety Report 23955876 (Version 1)
Quarter: 2024Q2

REPORT INFORMATION
  Report Type: Spontaneous
  Country: IT (occurrence: IT)
  Receive Date: 20240610
  Receipt Date: 20240610
  Transmission Date: 20240716
  Serious: Yes (Other)
  Sender: FDA-Public Use
  Company Number: IT-CHEPLA-2024006984

PATIENT
  Age: 75 Year
  Sex: Male
  Weight: 65 kg

DRUGS (5)
  1. URSODIOL [Suspect]
     Active Substance: URSODIOL
     Dosage: INITIALLY, THE DOSAGE WAS 1200 MG PER DAY
     Dates: start: 2017
  2. URSODIOL [Suspect]
     Active Substance: URSODIOL
     Dosage: REDUCED TO 900 MG PER DAY (IN THREE DOSES - MORNING, NOON, AND EVENING)
  3. URSODIOL [Suspect]
     Active Substance: URSODIOL
     Dosage: FROM MARCH TO THE END OF MAY, THE DOSAGE WAS INCREASED BACK TO 1200 MG
  4. URSODIOL [Suspect]
     Active Substance: URSODIOL
     Dosage: FROM JUNE 1ST, THE PATIENT INDEPENDENTLY REDUCED IT AGAIN TO 900 MG
  5. CAPECITABINE [Suspect]
     Active Substance: CAPECITABINE
     Dosage: CHEMOTHERAPY (CAPECITABINE PILLS) FOR 25 SESSIONS

REACTIONS (5)
  - Off label use [Unknown]
  - Rectal cancer [Unknown]
  - Aspartate aminotransferase increased [Unknown]
  - Gamma-glutamyltransferase increased [Unknown]
  - Blood alkaline phosphatase increased [Unknown]
